FAERS Safety Report 11424118 (Version 1)
Quarter: 2015Q3

REPORT INFORMATION
  Report Type: Spontaneous
  Country: FR (occurrence: FR)
  Receive Date: 20150827
  Receipt Date: 20150827
  Transmission Date: 20151125
  Serious: Yes (Hospitalization)
  Sender: FDA-Public Use
  Company Number: FR-ASTRAZENECA-2015SE81508

PATIENT
  Age: 963 Month
  Sex: Male

DRUGS (4)
  1. BISOCE [Suspect]
     Active Substance: BISOPROLOL
     Route: 048
  2. INEXIUM [Suspect]
     Active Substance: ESOMEPRAZOLE
     Route: 048
  3. COAPROVEL [Concomitant]
     Active Substance: HYDROCHLOROTHIAZIDE\IRBESARTAN
  4. IMOVANE [Concomitant]
     Active Substance: ZOPICLONE

REACTIONS (5)
  - Hypokalaemia [Recovered/Resolved]
  - Diarrhoea [Unknown]
  - Acute kidney injury [Recovered/Resolved]
  - Hypovolaemic shock [Unknown]
  - Hypomagnesaemia [Not Recovered/Not Resolved]

NARRATIVE: CASE EVENT DATE: 201505
